FAERS Safety Report 24925148 (Version 1)
Quarter: 2025Q1

REPORT INFORMATION
  Report Type: Report from Study
  Country: US (occurrence: US)
  Receive Date: 20250204
  Receipt Date: 20250204
  Transmission Date: 20250408
  Serious: No
  Sender: EXELIXIS
  Company Number: US-EXELIXIS-CABO-24077905

PATIENT
  Sex: Male

DRUGS (24)
  1. CABOMETYX [Suspect]
     Active Substance: CABOZANTINIB S-MALATE
     Indication: Renal cell carcinoma
     Dosage: 40 MG, QD
     Dates: start: 20240408
  2. CABOMETYX [Suspect]
     Active Substance: CABOZANTINIB S-MALATE
     Dosage: 40 MG, QOD
  3. CABOMETYX [Suspect]
     Active Substance: CABOZANTINIB S-MALATE
     Dosage: 40 MG, QD
     Dates: end: 20240829
  4. CABOMETYX [Suspect]
     Active Substance: CABOZANTINIB S-MALATE
     Dosage: 40 MG, QD
     Dates: start: 20241003
  5. OPDIVO [Suspect]
     Active Substance: NIVOLUMAB
     Indication: Renal cell carcinoma
     Dosage: UNK, Q4WEEKS
     Dates: start: 20240408
  6. ALBUTEROL [Concomitant]
     Active Substance: ALBUTEROL
  7. IPRATROPIUM [Concomitant]
     Active Substance: IPRATROPIUM
  8. ACETAMINOPHEN\HYDROCODONE [Concomitant]
     Active Substance: ACETAMINOPHEN\HYDROCODONE
  9. AMLODIPINE [Concomitant]
     Active Substance: AMLODIPINE BESYLATE
  10. ATORVASTATIN [Concomitant]
     Active Substance: ATORVASTATIN
  11. PREGABALIN [Concomitant]
     Active Substance: PREGABALIN
  12. CLONIDINE [Concomitant]
     Active Substance: CLONIDINE
  13. OZEMPIC [Concomitant]
     Active Substance: SEMAGLUTIDE
  14. LISINOPRIL [Concomitant]
     Active Substance: LISINOPRIL
  15. ONDANSETRON [Concomitant]
     Active Substance: ONDANSETRON
  16. DOXEPIN [Concomitant]
     Active Substance: DOXEPIN
  17. CITALOPRAM [Concomitant]
     Active Substance: CITALOPRAM
  18. PREDNISONE [Concomitant]
     Active Substance: PREDNISONE
  19. BUDESONIDE [Concomitant]
     Active Substance: BUDESONIDE
  20. TADALAFIL [Concomitant]
     Active Substance: TADALAFIL
  21. VITAMINS [Concomitant]
     Active Substance: VITAMINS
  22. ZINC [Concomitant]
     Active Substance: ZINC
  23. VITAMIN D NOS [Concomitant]
     Active Substance: CHOLECALCIFEROL\ERGOCALCIFEROL
  24. MUCINEX [Concomitant]
     Active Substance: GUAIFENESIN

REACTIONS (11)
  - Blood pressure increased [Recovering/Resolving]
  - Taste disorder [Not Recovered/Not Resolved]
  - Sluggishness [Not Recovered/Not Resolved]
  - Diarrhoea [Recovered/Resolved]
  - Fatigue [Not Recovered/Not Resolved]
  - Thirst [Not Recovered/Not Resolved]
  - Tooth disorder [Unknown]
  - Back pain [Recovering/Resolving]
  - Anaemia [Not Recovered/Not Resolved]
  - Inappropriate schedule of product administration [Unknown]
  - Product prescribing issue [Unknown]

NARRATIVE: CASE EVENT DATE: 20240101
